FAERS Safety Report 24005633 (Version 3)
Quarter: 2024Q3

REPORT INFORMATION
  Report Type: Spontaneous
  Country: US (occurrence: US)
  Receive Date: 20240624
  Receipt Date: 20240708
  Transmission Date: 20241017
  Serious: No
  Sender: PFIZER
  Company Number: US-PFIZER INC-PV202400078451

PATIENT
  Age: 76 Year
  Sex: Female
  Weight: 50.2 kg

DRUGS (2)
  1. BRAFTOVI [Suspect]
     Active Substance: ENCORAFENIB
     Dosage: 300 MG, 2X/DAY
     Route: 048
  2. BRAFTOVI [Suspect]
     Active Substance: ENCORAFENIB
     Dosage: 300 MG, DAILY  (75 MG 4 CAP(S) Q DAY)
     Route: 048

REACTIONS (2)
  - Neoplasm recurrence [Unknown]
  - Off label use [Unknown]
